FAERS Safety Report 7427450-3 (Version None)
Quarter: 2011Q2

REPORT INFORMATION
  Report Type: 
  Country: None (occurrence: None)
  Receive Date: 20110420
  Receipt Date: 20110325
  Transmission Date: 20111010
  Serious: No
  Sender: FDA-Public Use
  Company Number: US-B.I. PHARMACEUTICALS,INC./RIDGEFIELD-2011-BP-09230BP

PATIENT
  Age: 69 Year
  Sex: Female

DRUGS (5)
  1. HYDROCHLOROTHIAZIDE [Concomitant]
     Indication: HYPERTENSION
  2. EXFORGE [Concomitant]
     Indication: HYPERTENSION
  3. PRADAXA [Suspect]
     Indication: ATRIAL FIBRILLATION
     Dosage: 300 MG
     Route: 048
     Dates: start: 20110324
  4. XANAX [Concomitant]
     Indication: ANXIETY
  5. METOPROLOL [Concomitant]
     Indication: ATRIAL FIBRILLATION

REACTIONS (2)
  - DIZZINESS [None]
  - DYSPEPSIA [None]
